FAERS Safety Report 8381093-6 (Version None)
Quarter: 2012Q2

REPORT INFORMATION
  Report Type: 
  Country: None (occurrence: None)
  Receive Date: 20120523
  Receipt Date: 20120517
  Transmission Date: 20120825
  Serious: Yes (Other)
  Sender: FDA-Public Use
  Company Number: CH-ABBOTT-12P-151-0927481-00

PATIENT
  Sex: Male

DRUGS (1)
  1. HUMIRA [Suspect]
     Indication: PSORIASIS
     Dates: start: 20110627, end: 20120404

REACTIONS (3)
  - ARTHRALGIA [None]
  - PERIPHERAL ARTERIAL OCCLUSIVE DISEASE [None]
  - ARTERIAL OCCLUSIVE DISEASE [None]
